FAERS Safety Report 21883832 (Version 1)
Quarter: 2023Q1

REPORT INFORMATION
  Report Type: Spontaneous
  Country: US (occurrence: US)
  Receive Date: 20230119
  Receipt Date: 20230119
  Transmission Date: 20230417
  Serious: Yes (Hospitalization)
  Sender: FDA-Public Use
  Company Number: US-CTI BIOPHARMA-2022US03316

PATIENT

DRUGS (22)
  1. VONJO [Suspect]
     Active Substance: PACRITINIB
     Indication: Myeloproliferative neoplasm
     Dosage: 200 MG, BID
     Route: 048
  2. ACYCLOVIR [Concomitant]
     Active Substance: ACYCLOVIR
  3. AMLODIPINE [Concomitant]
     Active Substance: AMLODIPINE BESYLATE
  4. ASTELIN [Concomitant]
     Active Substance: AZELASTINE HYDROCHLORIDE
  5. BELBUCA [Concomitant]
     Active Substance: BUPRENORPHINE HYDROCHLORIDE
  6. CALCITRIOL [Concomitant]
     Active Substance: CALCITRIOL
  7. DANAZOL [Concomitant]
     Active Substance: DANAZOL
  8. ESTRADIOL [Concomitant]
     Active Substance: ESTRADIOL
  9. FAMOTIDINE [Concomitant]
     Active Substance: FAMOTIDINE
  10. FLONASE [Concomitant]
     Active Substance: FLUTICASONE PROPIONATE
  11. FUROSEMIDE [Concomitant]
     Active Substance: FUROSEMIDE
  12. CALCIUM [Concomitant]
     Active Substance: CALCIUM
  13. LIDOCAINE [Concomitant]
     Active Substance: LIDOCAINE
  14. LISINOPRIL [Concomitant]
     Active Substance: LISINOPRIL
  15. LOPERAMIDE [Concomitant]
     Active Substance: LOPERAMIDE
  16. LYRICA [Concomitant]
     Active Substance: PREGABALIN
  17. OMEGA 3 FISH OIL [FISH OIL] [Concomitant]
  18. OMEPRAZOLE [Concomitant]
     Active Substance: OMEPRAZOLE
  19. OSCAL [CALCITRIOL] [Concomitant]
  20. PROCHLORPERAZINE [Concomitant]
     Active Substance: PROCHLORPERAZINE
  21. FISH OIL [Concomitant]
     Active Substance: FISH OIL
  22. SODIUM BICARBONATE [Concomitant]
     Active Substance: SODIUM BICARBONATE

REACTIONS (1)
  - Renal disorder [Unknown]

NARRATIVE: CASE EVENT DATE: 20221221
